FAERS Safety Report 18674488 (Version 1)
Quarter: 2020Q4

REPORT INFORMATION
  Report Type: Other
  Country: US (occurrence: US)
  Receive Date: 20201229
  Receipt Date: 20201229
  Transmission Date: 20210114
  Serious: Yes (Hospitalization, Other)
  Sender: FDA-Public Use
  Company Number: US-INVENTIA-000061

PATIENT
  Age: 21 Year
  Sex: Female

DRUGS (8)
  1. MIRTAZAPINE. [Suspect]
     Active Substance: MIRTAZAPINE
     Indication: PRODUCT USED FOR UNKNOWN INDICATION
  2. MIRTAZAPINE. [Suspect]
     Active Substance: MIRTAZAPINE
     Indication: PRODUCT USED FOR UNKNOWN INDICATION
     Dosage: 7 OF HER 15 MG MIRTAZAPINE TABLETS
  3. CARIPRAZINE [Suspect]
     Active Substance: CARIPRAZINE
     Indication: PRODUCT USED FOR UNKNOWN INDICATION
     Dosage: 20 OF HER 3 MG CARIPRAZINE TABLETS
  4. PALIPERIDONE/PALIPERIDONE PALMITATE [Suspect]
     Active Substance: PALIPERIDONE
     Indication: PRODUCT USED FOR UNKNOWN INDICATION
  5. TOPIRAMATE. [Suspect]
     Active Substance: TOPIRAMATE
     Indication: PRODUCT USED FOR UNKNOWN INDICATION
     Dosage: 7 OF HER 50 MG TOPIRAMATE TABLETS
     Route: 048
  6. NAPROXEN/NAPROXEN AMINOBUTANOL/NAPROXEN SODIUM [Suspect]
     Active Substance: NAPROXEN
     Indication: PRODUCT USED FOR UNKNOWN INDICATION
     Dosage: 2 OF HER 220 MG NAPROXEN TABLETS
  7. PALIPERIDONE/PALIPERIDONE PALMITATE [Suspect]
     Active Substance: PALIPERIDONE
     Indication: PRODUCT USED FOR UNKNOWN INDICATION
     Dosage: 6 MG EXTENDED RELEASE PALIPERIDONE TABLETS. OVERDOSE ON 7 TABLETS.
  8. SUMATRIPTAN/SUMATRIPTAN SUCCINATE/SUMATRIPTAN SULFATE [Suspect]
     Active Substance: SUMATRIPTAN
     Indication: PRODUCT USED FOR UNKNOWN INDICATION
     Dosage: 2 OF HER 100 MG SUMATRIPTAN TABLETS

REACTIONS (6)
  - Sinus tachycardia [Recovered/Resolved]
  - Overdose [Unknown]
  - Chest pain [Recovered/Resolved]
  - Palpitations [Unknown]
  - Suicide attempt [Unknown]
  - Atrioventricular block first degree [Recovered/Resolved]
